FAERS Safety Report 9324551 (Version 3)
Quarter: 2014Q1

REPORT INFORMATION
  Report Type: Spontaneous
  Country: US (occurrence: US)
  Receive Date: 20130603
  Receipt Date: 20140320
  Transmission Date: 20141002
  Serious: Yes (Hospitalization)
  Sender: FDA-Public Use
  Company Number: US-B.I. PHARMACEUTICALS,INC./RIDGEFIELD-2013-BI-15161BP

PATIENT
  Age: 78 Year
  Sex: Male
  Weight: 90.72 kg

DRUGS (7)
  1. PRADAXA [Suspect]
     Indication: ATRIAL FIBRILLATION
     Dosage: 300 MG
     Route: 048
     Dates: start: 20101210, end: 20120616
  2. PRADAXA [Suspect]
     Indication: ANTICOAGULANT THERAPY
  3. BISACODYL [Concomitant]
     Route: 065
  4. LIPITOR [Concomitant]
     Dosage: 40 MG
     Route: 048
  5. ANDRODERM [Concomitant]
     Dosage: 5 MG
     Route: 062
  6. CENTRUM [Concomitant]
     Route: 048
  7. ASPIRIN [Concomitant]
     Route: 065

REACTIONS (3)
  - Haemothorax [Unknown]
  - Haemothorax [Recovered/Resolved]
  - Gastrointestinal haemorrhage [Recovered/Resolved]
